FAERS Safety Report 7396903-9 (Version None)
Quarter: 2011Q2

REPORT INFORMATION
  Report Type: 
  Country: None (occurrence: None)
  Receive Date: 20110406
  Receipt Date: 20110303
  Transmission Date: 20111010
  Serious: Yes (Hospitalization)
  Sender: FDA-Public Use
  Company Number: ES-BAYER-2011-026460

PATIENT
  Age: 62 Year
  Sex: Male

DRUGS (5)
  1. NAPROXEN SODIUM [Suspect]
     Dosage: 500 MG, BID
     Route: 048
     Dates: start: 20101026, end: 20101102
  2. COLCHICINE [Suspect]
     Indication: GOUTY TOPHUS
     Dosage: DAILY DOSE 1 MG
     Route: 048
     Dates: start: 20050101, end: 20101025
  3. NAPROXEN SODIUM [Suspect]
     Indication: GOUTY TOPHUS
     Dosage: 500 MG, QD
     Route: 048
     Dates: start: 20050101, end: 20101025
  4. ALLOPURINOL [Concomitant]
     Dosage: UNK
     Dates: start: 20050101, end: 20101102
  5. COLCHICINE [Suspect]
     Dosage: 2 MG, QID
     Route: 048
     Dates: start: 20101026

REACTIONS (10)
  - URINE OUTPUT DECREASED [None]
  - HYPOTENSION [None]
  - CHILLS [None]
  - HYPERHIDROSIS [None]
  - ANURIA [None]
  - RENAL FAILURE ACUTE [None]
  - NAUSEA [None]
  - SYNCOPE [None]
  - ABDOMINAL PAIN [None]
  - DIARRHOEA [None]
